FAERS Safety Report 8326244-4 (Version None)
Quarter: 2012Q2

REPORT INFORMATION
  Report Type: 
  Country: None (occurrence: None)
  Receive Date: 20120427
  Receipt Date: 20120417
  Transmission Date: 20120825
  Serious: Yes (Other)
  Sender: FDA-Public Use
  Company Number: 1260719

PATIENT

DRUGS (1)
  1. PROPOFOL [Suspect]
     Indication: SEDATION
     Dosage: ONE DOSE
     Dates: start: 20120414, end: 20120414

REACTIONS (3)
  - LACTIC ACIDOSIS [None]
  - RHABDOMYOLYSIS [None]
  - METABOLIC ACIDOSIS [None]
